FAERS Safety Report 17650303 (Version 1)
Quarter: 2020Q2

REPORT INFORMATION
  Report Type: Report from Study
  Country: CO (occurrence: CO)
  Receive Date: 20200409
  Receipt Date: 20200409
  Transmission Date: 20200713
  Serious: Yes (Hospitalization, Other)
  Sender: FDA-Public Use
  Company Number: CO-ASTELLAS-2020US007703

PATIENT
  Age: 28 Year
  Sex: Male
  Weight: 53 kg

DRUGS (6)
  1. TACROLIMUS. [Suspect]
     Active Substance: TACROLIMUS
     Indication: RENAL TRANSPLANT
     Dosage: 4 MG, ONCE DAILY (1 CAPSULE OF 3 MG AND 1 CAPSULE OF 1 MG EVERY 24 HOURS)
     Route: 048
     Dates: start: 20190923
  2. ESOMEPRAZOLE. [Concomitant]
     Active Substance: ESOMEPRAZOLE MAGNESIUM
     Indication: GASTRITIS
     Dosage: 1 MG, ONCE DAILY (EVERY 24 HOURS )
     Route: 048
     Dates: start: 20190923
  3. PREDNISOLONE. [Concomitant]
     Active Substance: PREDNISOLONE
     Indication: PRODUCT USED FOR UNKNOWN INDICATION
     Dosage: 10 MG, BETWEEN DAY
     Route: 048
     Dates: start: 20190923
  4. EVEROLIMUS. [Concomitant]
     Active Substance: EVEROLIMUS
     Indication: RENAL TRANSPLANT
     Dosage: 1 MG AT MORNING AND 0.5 MG AT NIGHT, TWICE DAILY
     Route: 048
     Dates: start: 20200214
  5. LOSARTAN. [Concomitant]
     Active Substance: LOSARTAN
     Indication: BLOOD PRESSURE ABNORMAL
     Route: 048
     Dates: start: 20190923
  6. CARVEDILOL. [Concomitant]
     Active Substance: CARVEDILOL
     Indication: PRODUCT USED FOR UNKNOWN INDICATION
     Dosage: 1 MG, ONCE DAILY (EVERY 24 HOURS)
     Route: 048
     Dates: start: 20190923

REACTIONS (2)
  - Urinary tract infection [Recovered/Resolved]
  - Nephritis [Not Recovered/Not Resolved]

NARRATIVE: CASE EVENT DATE: 20200216
